FAERS Safety Report 12198945 (Version 1)
Quarter: 2016Q1

REPORT INFORMATION
  Report Type: Spontaneous
  Country: BR (occurrence: BR)
  Receive Date: 20160322
  Receipt Date: 20160322
  Transmission Date: 20160526
  Serious: Yes (Hospitalization)
  Sender: FDA-Public Use
  Company Number: BR-B.I. PHARMACEUTICALS,INC./RIDGEFIELD-2016-BI-16907BR

PATIENT
  Age: 34 Year
  Sex: Male

DRUGS (1)
  1. JARDIANCE [Suspect]
     Active Substance: EMPAGLIFLOZIN
     Indication: TYPE 2 DIABETES MELLITUS
     Dosage: 25 MG
     Route: 065

REACTIONS (7)
  - Diabetic ketoacidosis [Recovered/Resolved]
  - Fatigue [Unknown]
  - Dehydration [Recovered/Resolved]
  - Asthenia [Unknown]
  - Weight decreased [Unknown]
  - Tachycardia [Unknown]
  - Gastroenteritis [Recovered/Resolved]

NARRATIVE: CASE EVENT DATE: 20160208
